FAERS Safety Report 7706351-7 (Version None)
Quarter: 2011Q3

REPORT INFORMATION
  Report Type: 
  Country: None (occurrence: None)
  Receive Date: 20110818
  Receipt Date: 20110809
  Transmission Date: 20111222
  Serious: Yes (Life-Threatening)
  Sender: FDA-Public Use
  Company Number: TCI2011A04249

PATIENT
  Age: 67 Year
  Sex: Male

DRUGS (7)
  1. LIPITOR [Concomitant]
  2. MICARDIS [Concomitant]
  3. ASPIRIN [Concomitant]
  4. AMARYL [Concomitant]
  5. IMIDAPRIL HYDROCHLORIDE [Concomitant]
  6. ACTOS [Suspect]
     Indication: DIABETES MELLITUS
     Dosage: PER ORAL,  15 MG (15 MG, 1 IN 1 D) PER ORAL
     Route: 048
     Dates: start: 20090407, end: 20110614
  7. ACTOS [Suspect]
     Indication: DIABETES MELLITUS
     Dosage: PER ORAL,  15 MG (15 MG, 1 IN 1 D) PER ORAL
     Route: 048
     Dates: start: 20080201

REACTIONS (2)
  - BLADDER CANCER [None]
  - BLOOD URINE PRESENT [None]
